FAERS Safety Report 11871003 (Version 1)
Quarter: 2015Q4

REPORT INFORMATION
  Report Type: Spontaneous
  Country: US (occurrence: None)
  Receive Date: 20151224
  Receipt Date: 20151224
  Transmission Date: 20160305
  Serious: No
  Sender: FDA-Public Use
  Company Number: None

PATIENT
  Age: 76 Year
  Sex: Female

DRUGS (3)
  1. AMARYL [Suspect]
     Active Substance: GLIMEPIRIDE
  2. GLIPIZIDE. [Suspect]
     Active Substance: GLIPIZIDE
  3. TOUJEO [Suspect]
     Active Substance: INSULIN GLARGINE

REACTIONS (5)
  - Hearing impaired [None]
  - Head injury [None]
  - Visual impairment [None]
  - Fall [None]
  - Blood pressure abnormal [None]
